FAERS Safety Report 5541692-3 (Version None)
Quarter: 2007Q4

REPORT INFORMATION
  Report Type: 
  Country: None (occurrence: None)
  Receive Date: 20071210
  Receipt Date: 20071207
  Transmission Date: 20080405
  Serious: Yes (Death, Life-Threatening, Hospitalization)
  Sender: FDA-Public Use
  Company Number: PHBS2006JP03551

PATIENT
  Age: 67 Year
  Sex: Female

DRUGS (8)
  1. CAPTOPRIL [Concomitant]
     Indication: HYPERTENSION
     Dosage: 37.5 MG, UNK
     Route: 048
     Dates: start: 20020501, end: 20060226
  2. RYTHMODAN [Concomitant]
     Indication: ARRHYTHMIA
     Dosage: 200 MG, UNK
     Route: 048
     Dates: start: 20030101, end: 20060226
  3. CLARUTE [Concomitant]
     Indication: HYPERTENSION
     Dosage: 200 MG, UNK
     Route: 048
     Dates: start: 20030101, end: 20060226
  4. GLUTATHIONE [Concomitant]
     Dosage: 300 MG, UNK
     Route: 048
     Dates: start: 20030101, end: 20060226
  5. URDESTON [Concomitant]
     Dosage: 300 MG, UNK
     Route: 048
     Dates: start: 20030101, end: 20060226
  6. JUVELA [Concomitant]
     Dosage: 400 MG, UNK
     Route: 048
     Dates: start: 20040101, end: 20060226
  7. APRESOLINE [Suspect]
     Indication: HYPERTENSION
     Dosage: 50 MG/DAY
     Route: 048
     Dates: start: 20050924, end: 20060226
  8. APRESOLINE [Suspect]
     Dosage: UNK, UNK
     Route: 048
     Dates: start: 20051001

REACTIONS (18)
  - ALANINE AMINOTRANSFERASE INCREASED [None]
  - ASPARTATE AMINOTRANSFERASE INCREASED [None]
  - BILIRUBIN CONJUGATED INCREASED [None]
  - BLOOD ALKALINE PHOSPHATASE INCREASED [None]
  - BLOOD BILIRUBIN INCREASED [None]
  - BLOOD LACTATE DEHYDROGENASE INCREASED [None]
  - DEPRESSED LEVEL OF CONSCIOUSNESS [None]
  - GAMMA-GLUTAMYLTRANSFERASE INCREASED [None]
  - HAEMOTHORAX [None]
  - HEPATIC ENCEPHALOPATHY [None]
  - HEPATITIS FULMINANT [None]
  - JAUNDICE [None]
  - LIVER DISORDER [None]
  - MALAISE [None]
  - MEDIASTINAL HAEMATOMA [None]
  - PROTHROMBIN TIME SHORTENED [None]
  - PYREXIA [None]
  - RESPIRATORY DISORDER [None]
